FAERS Safety Report 6840819-0 (Version None)
Quarter: 2010Q3

REPORT INFORMATION
  Report Type: 
  Country: None (occurrence: None)
  Receive Date: 20100714
  Receipt Date: 20100706
  Transmission Date: 20110219
  Serious: Yes (Other)
  Sender: FDA-Public Use
  Company Number: A0870228A

PATIENT
  Age: 64 Year
  Sex: Male

DRUGS (3)
  1. ARZERRA [Suspect]
     Dosage: 300MG UNKNOWN
     Route: 065
  2. DEXAMETHASONE [Concomitant]
  3. BENADRYL [Concomitant]

REACTIONS (4)
  - ERYTHEMA [None]
  - HYPERHIDROSIS [None]
  - PRURITUS [None]
  - URTICARIA [None]
